FAERS Safety Report 9729895 (Version 2)
Quarter: 2013Q4

REPORT INFORMATION
  Report Type: Report from Study
  Country: DE (occurrence: TR)
  Receive Date: 20131204
  Receipt Date: 20131230
  Transmission Date: 20140711
  Serious: Yes (Hospitalization)
  Sender: FDA-Public Use
  Company Number: DE-ACTELION-A-NJ2013-92181

PATIENT
  Age: 69 Year
  Sex: Female
  Weight: 115 kg

DRUGS (1)
  1. VENTAVIS [Suspect]
     Indication: PRODUCT USED FOR UNKNOWN INDICATION
     Dosage: 6X1
     Route: 055
     Dates: start: 20120721

REACTIONS (4)
  - Contusion [Recovered/Resolved]
  - Wound [Unknown]
  - Oedema peripheral [Recovered/Resolved]
  - Local swelling [Recovered/Resolved]
